FAERS Safety Report 5569262-1 (Version None)
Quarter: 2007Q4

REPORT INFORMATION
  Report Type: 
  Country: None (occurrence: None)
  Receive Date: 20071220
  Receipt Date: 20071018
  Transmission Date: 20080405
  Serious: No
  Sender: FDA-Public Use
  Company Number: A0684738A

PATIENT
  Age: 70 Year
  Sex: Male

DRUGS (5)
  1. AVODART [Suspect]
     Indication: URINARY TRACT DISORDER
     Dosage: 1TAB AT NIGHT
     Route: 048
  2. FLOMAX [Concomitant]
  3. COREG [Concomitant]
  4. LIPITOR [Concomitant]
  5. METFORMIN HCL [Concomitant]

REACTIONS (2)
  - DRUG INEFFECTIVE [None]
  - MEDICATION RESIDUE [None]
